FAERS Safety Report 6473924-1 (Version None)
Quarter: 2009Q4

REPORT INFORMATION
  Report Type: 
  Country: None (occurrence: None)
  Receive Date: 20091204
  Receipt Date: 20091029
  Transmission Date: 20100525
  Serious: Yes (Other)
  Sender: FDA-Public Use
  Company Number: A0810760A

PATIENT
  Age: 33 Year
  Sex: Male
  Weight: 111.4 kg

DRUGS (1)
  1. LAMICTAL [Suspect]
     Indication: BIPOLAR DISORDER
     Dosage: 25MG SINGLE DOSE
     Dates: start: 20090922, end: 20090922

REACTIONS (2)
  - ERYTHEMA [None]
  - FLUSHING [None]
